FAERS Safety Report 24115274 (Version 1)
Quarter: 2024Q3

REPORT INFORMATION
  Report Type: Spontaneous
  Country: US (occurrence: US)
  Receive Date: 20240721
  Receipt Date: 20240721
  Transmission Date: 20241016
  Serious: No
  Sender: NOVO NORDISK
  Company Number: US-NOVOPROD-1202929

PATIENT

DRUGS (1)
  1. WEGOVY [Suspect]
     Active Substance: SEMAGLUTIDE
     Indication: Product used for unknown indication
     Dosage: 0.25 MG FOR 2 MONTHS
     Route: 058

REACTIONS (4)
  - Adverse drug reaction [Unknown]
  - Oropharyngeal pain [Unknown]
  - Pain [Unknown]
  - Inappropriate schedule of product administration [Unknown]
